FAERS Safety Report 10896054 (Version 1)
Quarter: 2015Q1

REPORT INFORMATION
  Report Type: Other
  Country: IT (occurrence: IT)
  Receive Date: 20150308
  Receipt Date: 20150308
  Transmission Date: 20150721
  Serious: Yes (Other)
  Sender: FDA-Public Use
  Company Number: IT-MYLANLABS-2015M1006331

PATIENT

DRUGS (1)
  1. OXALIPLATINO MYLAN GENERICS 5 MG/ML POWDER FOR SOLUTION FOR INFUSION [Suspect]
     Active Substance: OXALIPLATIN
     Indication: CHEMOTHERAPY
     Dosage: 204 MG MONTHLY
     Route: 041
     Dates: start: 20150210

REACTIONS (6)
  - Tachycardia [Recovering/Resolving]
  - Tremor [Recovering/Resolving]
  - Blood pressure increased [Recovering/Resolving]
  - Bronchospasm [Recovering/Resolving]
  - Anxiety [Recovering/Resolving]
  - Joint contracture [Recovering/Resolving]

NARRATIVE: CASE EVENT DATE: 20150210
